FAERS Safety Report 7819862-0 (Version None)
Quarter: 2011Q4

REPORT INFORMATION
  Report Type: 
  Country: None (occurrence: None)
  Receive Date: 20111018
  Receipt Date: 20101102
  Transmission Date: 20120403
  Serious: No
  Sender: FDA-Public Use
  Company Number: US-ASTRAZENECA-2010SE52379

PATIENT
  Age: 91 Year
  Sex: Male
  Weight: 62.6 kg

DRUGS (4)
  1. POTASSIUM [Concomitant]
  2. FUROSEMIDE [Concomitant]
  3. SYMBICORT [Suspect]
     Indication: CHRONIC OBSTRUCTIVE PULMONARY DISEASE
     Dosage: 320 MCG BID
     Route: 055
     Dates: start: 20101101, end: 20101101
  4. ALENDRONATE SODIUM [Concomitant]
     Indication: OSTEOPOROSIS

REACTIONS (2)
  - HEART RATE DECREASED [None]
  - ANXIETY [None]
